FAERS Safety Report 14862177 (Version 1)
Quarter: 2018Q2

REPORT INFORMATION
  Report Type: Spontaneous
  Country: US (occurrence: US)
  Receive Date: 20180508
  Receipt Date: 20180508
  Transmission Date: 20180711
  Serious: No
  Sender: FDA-Public Use
  Company Number: US-INCYTE CORPORATION-2018IN004201

PATIENT

DRUGS (1)
  1. JAKAFI [Suspect]
     Active Substance: RUXOLITINIB
     Indication: BREAST CANCER FEMALE
     Dosage: 5 MG, BID
     Route: 048
     Dates: start: 20180403

REACTIONS (4)
  - Inappropriate schedule of drug administration [Unknown]
  - Off label use [Unknown]
  - Drug dose omission [Unknown]
  - Memory impairment [Unknown]

NARRATIVE: CASE EVENT DATE: 20180403
